FAERS Safety Report 25888571 (Version 1)
Quarter: 2025Q4

REPORT INFORMATION
  Report Type: Other
  Country: GB (occurrence: GB)
  Receive Date: 20251007
  Receipt Date: 20251007
  Transmission Date: 20260118
  Serious: Yes (Life-Threatening, Disabling, Other)
  Sender: GLENMARK
  Company Number: GB-MHRA-TPP34529905C7385074YC1758627070790

PATIENT
  Age: 58 Year
  Sex: Male
  Weight: 90 kg

DRUGS (15)
  1. DAPAGLIFLOZIN [Suspect]
     Active Substance: DAPAGLIFLOZIN
     Indication: Ill-defined disorder
     Dosage: 10 MILLIGRAM, QD
     Route: 065
     Dates: start: 20250609, end: 20250923
  2. DEXAMETHASONE [Concomitant]
     Active Substance: DEXAMETHASONE
     Indication: Ill-defined disorder
     Dosage: 1 DOSAGE FORM, QID (ONE DROPIN LEFT YE FOUR TIMES A DAY AS ADIVSED ...)
     Route: 065
     Dates: start: 20250922
  3. COCODAMOL [Concomitant]
     Active Substance: ACETAMINOPHEN\CODEINE PHOSPHATE
     Indication: Ill-defined disorder
     Dosage: UNK UNK, PRN (ONE OR TWO TO BE TAKEN FOUR TIMES A DAY WHEN REQUIRED)
     Route: 065
     Dates: start: 20250707, end: 20250719
  4. NAPROXEN [Concomitant]
     Active Substance: NAPROXEN
     Indication: Ill-defined disorder
     Dosage: UNK UNK, BID (ONE TO BE TAKEN TWICE A DAY WITH FOOD AS REQUIRED)
     Route: 065
     Dates: start: 20250707, end: 20250804
  5. MOUNJARO [Concomitant]
     Active Substance: TIRZEPATIDE
     Indication: Ill-defined disorder
     Dosage: UNK UNK, QW (INJECT ONCE WEEKLY.)
     Route: 065
     Dates: start: 20250826, end: 20250923
  6. Glucogel [Concomitant]
     Indication: Hypoglycaemia
     Dosage: UNK (USE AS DIRECTED- IN CAS EOF LOW SUGAR/HYPOGLYCE...)
     Route: 065
     Dates: start: 20250919, end: 20250920
  7. DIAZEPAM [Concomitant]
     Active Substance: DIAZEPAM
     Indication: Ill-defined disorder
     Dosage: UNK (ONE A DAY- MAX THREE TIMES DAILY)
     Route: 065
     Dates: start: 20250922
  8. ATORVASTATIN [Concomitant]
     Active Substance: ATORVASTATIN
     Indication: Ill-defined disorder
     Dosage: UNK UNK, QD (TAKE ONE DAILY)
     Route: 065
     Dates: start: 20250325
  9. MIRTAZAPINE [Concomitant]
     Active Substance: MIRTAZAPINE
     Indication: Ill-defined disorder
     Dosage: UNK UNK, HS (ONE TO BE TAKEN AT NIGHT)
     Route: 065
     Dates: start: 20250325
  10. OMEPRAZOLE [Concomitant]
     Active Substance: OMEPRAZOLE
     Indication: Ill-defined disorder
     Dosage: UNK (ONE TO BE TAKEN TWICE A DAY)
     Route: 065
     Dates: start: 20250325
  11. SERTRALINE [Concomitant]
     Active Substance: SERTRALINE HYDROCHLORIDE
     Indication: Ill-defined disorder
     Dosage: UNK UNK, AM (ONE TO BE TAKEN IN THE MORNING)
     Route: 065
     Dates: start: 20250325
  12. METFORMIN [Concomitant]
     Active Substance: METFORMIN HYDROCHLORIDE
     Indication: Ill-defined disorder
     Dosage: UNK UNK, OD (TWO TO BE TAKEN ONCE A DAY WITH EVENING MEAL)
     Route: 065
     Dates: start: 20250609, end: 20250923
  13. LANTUS [Concomitant]
     Active Substance: INSULIN GLARGINE
     Indication: Ill-defined disorder
     Dosage: UNK (USE AS DIRECTED)
     Route: 065
     Dates: start: 20250923, end: 20250923
  14. INSULIN ASPART [Concomitant]
     Active Substance: INSULIN ASPART
     Indication: Ill-defined disorder
     Dosage: UNK (USE AS DIRECTED)
     Route: 065
     Dates: start: 20250923, end: 20250923
  15. INSULIN ASPART [Concomitant]
     Active Substance: INSULIN ASPART
     Indication: Ill-defined disorder
     Dosage: USE AS DIRECTED
     Route: 065
     Dates: start: 20250923

REACTIONS (3)
  - Blindness [Not Recovered/Not Resolved]
  - Pancreatitis [Recovering/Resolving]
  - Diabetic ketoacidosis [Recovering/Resolving]

NARRATIVE: CASE EVENT DATE: 20250828
